FAERS Safety Report 6850999-9 (Version None)
Quarter: 2010Q3

REPORT INFORMATION
  Report Type: 
  Country: None (occurrence: None)
  Receive Date: 20100716
  Receipt Date: 20100705
  Transmission Date: 20110219
  Serious: Yes (Hospitalization)
  Sender: FDA-Public Use
  Company Number: FR-ELI_LILLY_AND_COMPANY-FR201007000669

PATIENT
  Age: 18 Year
  Sex: Female

DRUGS (4)
  1. GEMZAR [Suspect]
     Indication: HEPATIC NEOPLASM MALIGNANT
     Dosage: 1540 MG, PER CYCLE
     Route: 042
     Dates: start: 20100430
  2. NEXAVAR [Concomitant]
     Indication: HEPATIC NEOPLASM MALIGNANT
     Dosage: 400 MG, 2/D
     Route: 048
     Dates: start: 20100501
  3. ELOXATIN [Concomitant]
     Dosage: 154 MG, PER CYCLE
     Route: 042
     Dates: start: 20100430
  4. ZOPHREN [Concomitant]
     Dosage: UNK, UNKNOWN
     Route: 048

REACTIONS (2)
  - OFF LABEL USE [None]
  - TOXIC EPIDERMAL NECROLYSIS [None]
